FAERS Safety Report 8299137-9 (Version None)
Quarter: 2012Q2

REPORT INFORMATION
  Report Type: 
  Country: None (occurrence: None)
  Receive Date: 20120419
  Receipt Date: 20120411
  Transmission Date: 20120825
  Serious: Yes (Other)
  Sender: FDA-Public Use
  Company Number: CA-ROCHE-1059153

PATIENT
  Sex: Male
  Weight: 75.364 kg

DRUGS (19)
  1. MABTHERA [Suspect]
     Indication: ANAEMIA HAEMOLYTIC AUTOIMMUNE
  2. GABAPENTIN [Concomitant]
  3. MABTHERA [Suspect]
     Indication: IDIOPATHIC THROMBOCYTOPENIC PURPURA
     Route: 042
     Dates: start: 20120403, end: 20120403
  4. REACTINE (CANADA) [Concomitant]
  5. LEVEMIR [Concomitant]
  6. AMIODARONE HCL [Concomitant]
  7. ACETYLSALICYLIC ACID SRT [Concomitant]
  8. CYCLOMEN [Concomitant]
  9. DEXAMETHASONE [Concomitant]
  10. NORVASC [Concomitant]
  11. NITROGLYCERIN [Concomitant]
  12. MAGNESIUM [Concomitant]
  13. FENTANYL [Concomitant]
  14. NYSTATIN [Concomitant]
  15. PREVACID [Concomitant]
  16. SEPTRA [Concomitant]
  17. CARVEDILOL [Concomitant]
  18. ESCITALOPRAM [Concomitant]
  19. SULFASALAZINE [Concomitant]

REACTIONS (3)
  - NAUSEA [None]
  - CHEST PAIN [None]
  - HAEMOGLOBIN DECREASED [None]
